FAERS Safety Report 6136817-5 (Version None)
Quarter: 2009Q1

REPORT INFORMATION
  Report Type: 
  Country: None (occurrence: None)
  Receive Date: 20090326
  Receipt Date: 20090326
  Transmission Date: 20090719
  Serious: Yes (Other)
  Sender: FDA-Public Use
  Company Number: None

PATIENT
  Age: 61 Year
  Sex: Female

DRUGS (3)
  1. PROGRAF [Suspect]
     Indication: LIVER TRANSPLANT
     Dosage: UNK, UNKNOWN/D, UNKNOWN
  2. SIROLIMUS(SIROLIMUS) [Suspect]
     Indication: LIVER TRANSPLANT
     Dosage: UNK, UNKNOWN/D, UNKNOWN
  3. PREDNISOLONE [Suspect]
     Indication: LIVER TRANSPLANT
     Dosage: UNK,UNKNOWN/D, UNKNOWN

REACTIONS (1)
  - BILE DUCT CANCER RECURRENT [None]
